FAERS Safety Report 19268715 (Version 1)
Quarter: 2021Q2

REPORT INFORMATION
  Report Type: Spontaneous
  Country: US (occurrence: US)
  Receive Date: 20210517
  Receipt Date: 20210517
  Transmission Date: 20210717
  Serious: No
  Sender: FDA-Public Use
  Company Number: US-HORIZON THERAPEUTICS-HZN-2021-001212

PATIENT
  Sex: Male

DRUGS (2)
  1. TEPEZZA [Suspect]
     Active Substance: TEPROTUMUMAB-TRBW
     Indication: PRODUCT USED FOR UNKNOWN INDICATION
     Dosage: 8TH DOSE
     Dates: end: 202010
  2. INSULIN [Concomitant]
     Active Substance: INSULIN NOS
     Dosage: 4 TIMES A DAY

REACTIONS (2)
  - Hyperglycaemia [Unknown]
  - Weight decreased [Unknown]
